FAERS Safety Report 5427773-3 (Version None)
Quarter: 2007Q3

REPORT INFORMATION
  Report Type: 
  Country: None (occurrence: None)
  Receive Date: 20070828
  Receipt Date: 20070821
  Transmission Date: 20080115
  Serious: Yes (Hospitalization, Other)
  Sender: FDA-Public Use
  Company Number: US-ELI_LILLY_AND_COMPANY-US200708004785

PATIENT
  Age: 70 Year
  Sex: Male

DRUGS (4)
  1. HUMALOG MIX 75/25 [Suspect]
     Indication: TYPE 2 DIABETES MELLITUS
     Dosage: 15 U, 2/D
     Dates: start: 19970101
  2. HUMALOG MIX 75/25 [Suspect]
     Dates: start: 19970101
  3. HUMALOG MIX 75/25 [Suspect]
     Dates: start: 19970101
  4. HUMALOG MIX 75/25 [Suspect]
     Dosage: UNK, UNK
     Dates: start: 19970101

REACTIONS (9)
  - BLOOD GLUCOSE INCREASED [None]
  - CORONARY ARTERY OCCLUSION [None]
  - COUGH [None]
  - FALL [None]
  - FEELING ABNORMAL [None]
  - LOCALISED INFECTION [None]
  - PAIN IN EXTREMITY [None]
  - POOR PERIPHERAL CIRCULATION [None]
  - SUDDEN ONSET OF SLEEP [None]
